FAERS Safety Report 9526547 (Version 2)
Quarter: 2013Q3

REPORT INFORMATION
  Report Type: Spontaneous
  Country: US (occurrence: US)
  Receive Date: 20130916
  Receipt Date: 20130919
  Transmission Date: 20140515
  Serious: No
  Sender: FDA-Public Use
  Company Number: US-PFIZER INC-2013265629

PATIENT
  Age: 26 Year
  Sex: Male

DRUGS (1)
  1. NICOTROL INHALER [Suspect]
     Indication: SMOKING CESSATION THERAPY
     Dosage: UNK
     Dates: start: 201309

REACTIONS (4)
  - Emotional disorder [Unknown]
  - Abnormal behaviour [Unknown]
  - Depressed mood [Unknown]
  - Drug ineffective [Unknown]
